FAERS Safety Report 5019987-1 (Version None)
Quarter: 2006Q2

REPORT INFORMATION
  Report Type: 
  Country: None (occurrence: None)
  Receive Date: 20060601
  Receipt Date: 20060523
  Transmission Date: 20061013
  Serious: Yes (Death)
  Sender: FDA-Public Use
  Company Number: HQWYE505923MAY06

PATIENT
  Age: 55 Year
  Sex: Male

DRUGS (3)
  1. INDERAL [Suspect]
  2. LIDOCAINE [Suspect]
  3. DORMONID (MIDAZOLAM) [Concomitant]

REACTIONS (3)
  - ASPHYXIA [None]
  - COMPLETED SUICIDE [None]
  - DRUG SCREEN POSITIVE [None]
